FAERS Safety Report 4835599-4 (Version None)
Quarter: 2005Q4

REPORT INFORMATION
  Report Type: 
  Country: None (occurrence: None)
  Receive Date: 20051121
  Receipt Date: 20051115
  Transmission Date: 20060501
  Serious: Yes (Hospitalization, Other)
  Sender: FDA-Public Use
  Company Number: 2005-11-0777

PATIENT
  Age: 58 Year
  Sex: Male

DRUGS (2)
  1. TEMODAR [Suspect]
     Indication: GLIOBLASTOMA MULTIFORME
     Dosage: 75 MG/M^2 ORAL
     Route: 048
     Dates: start: 20051017, end: 20051114
  2. RADIATION THERAPY [Concomitant]

REACTIONS (2)
  - COAGULOPATHY [None]
  - DEEP VEIN THROMBOSIS [None]
